FAERS Safety Report 11793886 (Version 1)
Quarter: 2015Q4

REPORT INFORMATION
  Report Type: Spontaneous
  Country: US (occurrence: None)
  Receive Date: 20151201
  Receipt Date: 20151201
  Transmission Date: 20160305
  Serious: No
  Sender: FDA-Public Use
  Company Number: None

PATIENT
  Age: 43 Year
  Sex: Female
  Weight: 81.65 kg

DRUGS (13)
  1. LITHIUM. [Concomitant]
     Active Substance: LITHIUM
  2. VIIBRYD [Concomitant]
     Active Substance: VILAZODONE HYDROCHLORIDE
  3. TEMAZEPAM. [Concomitant]
     Active Substance: TEMAZEPAM
  4. DAILY VITAMIN [Concomitant]
     Active Substance: VITAMINS
  5. E SUPPLEMENT [Concomitant]
  6. FISH OIL [Concomitant]
     Active Substance: FISH OIL
  7. VIIBRYD [Suspect]
     Active Substance: VILAZODONE HYDROCHLORIDE
     Indication: DEPRESSION
     Route: 048
  8. VIIBRYD [Suspect]
     Active Substance: VILAZODONE HYDROCHLORIDE
     Indication: BIPOLAR DISORDER
     Route: 048
  9. ARMOUR THYROID [Concomitant]
     Active Substance: THYROID, PORCINE\THYROID, UNSPECIFIED
  10. THYROID SUPPORT HERBAL SUPPLEMENT [Concomitant]
  11. KIDNEY SUPPORT HERBAL SUPPLEMENT [Concomitant]
  12. OXCARBAZINE [Concomitant]
     Active Substance: OXCARBAZEPINE
  13. LORAZEPAM. [Concomitant]
     Active Substance: LORAZEPAM

REACTIONS (2)
  - Irritability [None]
  - Anger [None]
